FAERS Safety Report 5962443-4 (Version None)
Quarter: 2008Q4

REPORT INFORMATION
  Report Type: 
  Country: None (occurrence: None)
  Receive Date: 20081121
  Receipt Date: 20081114
  Transmission Date: 20090506
  Serious: Yes (Hospitalization, Other)
  Sender: FDA-Public Use
  Company Number: PHHY2008JP25966

PATIENT
  Age: 69 Year
  Sex: Female

DRUGS (2)
  1. TEGRETOL [Suspect]
     Indication: NEURALGIA
     Dosage: UNK
     Route: 048
     Dates: start: 20080901, end: 20081020
  2. GRANDAXIN [Concomitant]
     Dosage: UNK
     Route: 048
     Dates: start: 20080901, end: 20081020

REACTIONS (4)
  - CHOLELITHIASIS [None]
  - GAMMA-GLUTAMYLTRANSFERASE INCREASED [None]
  - PYREXIA [None]
  - RASH GENERALISED [None]
